FAERS Safety Report 23187931 (Version 1)
Quarter: 2023Q4

REPORT INFORMATION
  Report Type: Spontaneous
  Country: AT (occurrence: AT)
  Receive Date: 20231115
  Receipt Date: 20231115
  Transmission Date: 20240110
  Serious: Yes (Other)
  Sender: FDA-Public Use
  Company Number: AT-Merck Healthcare KGaA-2023486899

PATIENT
  Age: 86 Year
  Sex: Female

DRUGS (1)
  1. BAVENCIO [Suspect]
     Active Substance: AVELUMAB
     Indication: Transitional cell carcinoma

REACTIONS (2)
  - Intraductal papillary mucinous neoplasm [Recovering/Resolving]
  - Alopecia [Unknown]
